FAERS Safety Report 7363104-X (Version None)
Quarter: 2011Q1

REPORT INFORMATION
  Report Type: 
  Country: None (occurrence: None)
  Receive Date: 20110321
  Receipt Date: 20110315
  Transmission Date: 20110831
  Serious: Yes (Other)
  Sender: FDA-Public Use
  Company Number: US-SHIRE-ALL1-2011-00717

PATIENT
  Sex: Male
  Weight: 38.549 kg

DRUGS (3)
  1. CLARITIN                           /00413701/ [Concomitant]
     Indication: SEASONAL ALLERGY
     Dosage: UNK MG, AS REQ'D
     Route: 048
  2. VYVANSE [Suspect]
     Dosage: 70 MG, 1X/DAY:QD
     Route: 048
     Dates: start: 20090101
  3. VYVANSE [Suspect]
     Indication: ATTENTION DEFICIT/HYPERACTIVITY DISORDER
     Dosage: UNK MG, 1X/DAY:QD
     Route: 048
     Dates: start: 20080101, end: 20090101

REACTIONS (3)
  - TYPE 1 DIABETES MELLITUS [None]
  - WEIGHT INCREASED [None]
  - DISTURBANCE IN ATTENTION [None]
